FAERS Safety Report 4767367-6 (Version None)
Quarter: 2005Q3

REPORT INFORMATION
  Report Type: 
  Country: None (occurrence: None)
  Receive Date: 20050913
  Receipt Date: 20050906
  Transmission Date: 20060218
  Serious: Yes (Life-Threatening)
  Sender: FDA-Public Use
  Company Number: FR-ROCHE-416808

PATIENT
  Sex: Male
  Weight: 78 kg

DRUGS (2)
  1. XELODA [Suspect]
     Indication: RECTAL CANCER
     Route: 065
     Dates: start: 20050806
  2. OXALIPLATIN [Concomitant]
     Indication: RECTAL CANCER
     Route: 065
     Dates: start: 20050808

REACTIONS (1)
  - PERITONITIS [None]
